FAERS Safety Report 5725982-7 (Version None)
Quarter: 2008Q2

REPORT INFORMATION
  Report Type: 
  Country: None (occurrence: None)
  Receive Date: 20080502
  Receipt Date: 20080428
  Transmission Date: 20081010
  Serious: Yes (Congenital Anomaly)
  Sender: FDA-Public Use
  Company Number: DE-BRISTOL-MYERS SQUIBB COMPANY-14166367

PATIENT
  Age: 17 Day
  Sex: Female
  Weight: 2 kg

DRUGS (2)
  1. CARBIDOPA + LEVODOPA [Suspect]
     Dosage: DAILY DOSE 1.5 - 1 - 1 TABLETS, FOR MANY YEARS, INDICATION OF SEGAWA'S SYNDROME (DOPA-SENSITIVE)
     Route: 064
  2. ASPIRIN [Concomitant]
     Route: 064

REACTIONS (5)
  - CLEFT PALATE [None]
  - EAR MALFORMATION [None]
  - PREGNANCY [None]
  - RIB DEFORMITY [None]
  - SPINE MALFORMATION [None]
